FAERS Safety Report 7632009-9 (Version None)
Quarter: 2011Q3

REPORT INFORMATION
  Report Type: 
  Country: None (occurrence: None)
  Receive Date: 20110725
  Receipt Date: 20101029
  Transmission Date: 20111222
  Serious: Yes (Other)
  Sender: FDA-Public Use
  Company Number: US-BRISTOL-MYERS SQUIBB COMPANY-13691415

PATIENT
  Age: 77 Year
  Sex: Female
  Weight: 49 kg

DRUGS (17)
  1. LOVAZA [Concomitant]
  2. MULTI-VITAMINS [Concomitant]
  3. FLECAINIDE ACETATE [Concomitant]
  4. PEPCID [Concomitant]
  5. COUMADIN [Suspect]
     Indication: ATRIAL FIBRILLATION
     Dosage: CURRENT DOSE WAS 3MG DAILY.
     Dates: start: 20060101
  6. CARDIZEM LA [Concomitant]
     Dosage: CARDIZEM LA 360
  7. GLUCOSAMINE [Concomitant]
  8. ALBUTEROL INHALER [Concomitant]
  9. HYDROCHLOROTHIAZIDE [Concomitant]
  10. ACTONEL [Concomitant]
  11. SPIRIVA [Concomitant]
  12. VITAMIN B-12 [Concomitant]
  13. OXYGEN [Concomitant]
     Dosage: SUPPLEMENTAL OXYGEN
  14. ALLEGRA [Concomitant]
  15. MICARDIS [Concomitant]
  16. CALCIUM CARBONATE [Concomitant]
  17. FOLIC ACID [Concomitant]

REACTIONS (3)
  - INTERNATIONAL NORMALISED RATIO FLUCTUATION [None]
  - ABDOMINAL DISTENSION [None]
  - WEIGHT DECREASED [None]
